FAERS Safety Report 10662975 (Version 1)
Quarter: 2014Q4

REPORT INFORMATION
  Report Type: Spontaneous
  Country: US (occurrence: None)
  Receive Date: 20141208
  Receipt Date: 20141208
  Transmission Date: 20150529
  Serious: No
  Sender: FDA-Public Use
  Company Number: 2014TUS007181

PATIENT
  Age: 28 Year
  Sex: Female
  Weight: 73.9 kg

DRUGS (1)
  1. BRINTELLIX [Suspect]
     Active Substance: VORTIOXETINE HYDROBROMIDE
     Indication: MAJOR DEPRESSION
     Dosage: 20 UNK
     Route: 048
     Dates: start: 20140502, end: 20140804

REACTIONS (1)
  - Anxiety [None]

NARRATIVE: CASE EVENT DATE: 201407
